FAERS Safety Report 10951099 (Version 2)
Quarter: 2015Q1

REPORT INFORMATION
  Report Type: Spontaneous
  Country: PH (occurrence: PH)
  Receive Date: 20150324
  Receipt Date: 20150326
  Transmission Date: 20150721
  Serious: Yes (Death, Other)
  Sender: FDA-Public Use
  Company Number: PH-009507513-1503PHL010135

PATIENT
  Age: 24 Year
  Sex: Female

DRUGS (1)
  1. IMPLANON [Suspect]
     Active Substance: ETONOGESTREL
     Dosage: UNK
     Route: 059
     Dates: start: 20140922

REACTIONS (17)
  - Chest discomfort [Unknown]
  - Headache [Recovered/Resolved]
  - Haematemesis [Unknown]
  - Ulcer haemorrhage [Fatal]
  - Seizure [Unknown]
  - Pyrexia [Recovered/Resolved]
  - Pallor [Unknown]
  - Cough [Unknown]
  - Bradycardia [Unknown]
  - Upper gastrointestinal haemorrhage [Fatal]
  - Headache [Recovered/Resolved]
  - Abdominal tenderness [Unknown]
  - Arrhythmia [Fatal]
  - Hypotension [Fatal]
  - Abdominal pain upper [Unknown]
  - Peptic ulcer haemorrhage [Fatal]
  - Weight decreased [Unknown]

NARRATIVE: CASE EVENT DATE: 2014
